FAERS Safety Report 4947817-2 (Version None)
Quarter: 2006Q1

REPORT INFORMATION
  Report Type: 
  Country: None (occurrence: None)
  Receive Date: 20060320
  Receipt Date: 20060317
  Transmission Date: 20060701
  Serious: Yes (Life-Threatening)
  Sender: FDA-Public Use
  Company Number: GXKR2006DE01402

PATIENT
  Age: 20 Year
  Sex: Male
  Weight: 82 kg

DRUGS (1)
  1. AMOCLAV [Suspect]
     Indication: TONSILLITIS
     Dosage: 1000MG TWICE PER DAY
     Route: 048
     Dates: start: 20060201

REACTIONS (4)
  - DERMATITIS BULLOUS [None]
  - DYSPHAGIA [None]
  - DYSPNOEA [None]
  - ORAL MUCOSAL BLISTERING [None]
